FAERS Safety Report 9690816 (Version 1)
Quarter: 2013Q4

REPORT INFORMATION
  Report Type: Spontaneous
  Country: US (occurrence: None)
  Receive Date: 20131114
  Receipt Date: 20131114
  Transmission Date: 20140711
  Serious: No
  Sender: FDA-Public Use
  Company Number: None

PATIENT
  Sex: Female

DRUGS (1)
  1. TECFIDERA [Suspect]
     Route: 048
     Dates: start: 20130919, end: 20130921

REACTIONS (4)
  - Convulsion [None]
  - Dehydration [None]
  - Blood glucose increased [None]
  - Urinary tract infection [None]
